FAERS Safety Report 11915248 (Version 2)
Quarter: 2016Q1

REPORT INFORMATION
  Report Type: Spontaneous
  Country: DE (occurrence: DE)
  Receive Date: 20160114
  Receipt Date: 20160201
  Transmission Date: 20160526
  Serious: Yes (Hospitalization)
  Sender: FDA-Public Use
  Company Number: DE-ROCHE-1692948

PATIENT
  Age: 65 Year
  Sex: Male

DRUGS (12)
  1. ACICLOVIR [Concomitant]
     Active Substance: ACYCLOVIR
     Route: 065
     Dates: start: 201511
  2. RITUXIMAB [Suspect]
     Active Substance: RITUXIMAB
     Indication: B-CELL LYMPHOMA
     Dosage: ONCE/CYCLE FOR 1 DAY (LAST DOSE PRIOR TO SAE 17/DEC/2015)
     Route: 042
     Dates: start: 20151217
  3. PREDNISOLONE. [Suspect]
     Active Substance: PREDNISOLONE
     Indication: B-CELL LYMPHOMA
     Dosage: 6 TIMES/CYCLE, 1X FOR 6 DAY (LAST DOSE PRIOR TO SAE 22/DEC/2015)
     Route: 042
     Dates: start: 20151217
  4. NEULASTA [Suspect]
     Active Substance: PEGFILGRASTIM
     Indication: B-CELL LYMPHOMA
     Dosage: DAY 4 OF EACH CYCLE FOR 1 DAY
     Route: 058
     Dates: start: 20151221
  5. DOXORUBICIN [Suspect]
     Active Substance: DOXORUBICIN
     Indication: B-CELL LYMPHOMA
     Dosage: ONCE/CYCLE FOR 1 DAY (LAST DOSE PRIOR TO SAE 18/DEC/2015)
     Route: 042
     Dates: start: 20151218
  6. METHOTREXATE (METHOTREXATE SODIUM) [Suspect]
     Active Substance: METHOTREXATE SODIUM
     Indication: B-CELL LYMPHOMA
     Dosage: 1 CYCLE FOR 2 DAYS (LAST DOSE PRIOR TO SAE 27/NOV/2015)
     Route: 042
     Dates: start: 20151126
  7. CIPROFLOXACIN. [Concomitant]
     Active Substance: CIPROFLOXACIN
     Route: 065
     Dates: start: 201511
  8. ALLOPURINOL. [Concomitant]
     Active Substance: ALLOPURINOL
     Route: 065
     Dates: start: 201511
  9. CYCLOPHOSPHAMIDE. [Suspect]
     Active Substance: CYCLOPHOSPHAMIDE
     Indication: B-CELL LYMPHOMA
     Dosage: ONCE/CYCLE FOR 1 DAY (LAST DOSE PRIOR TO SAE 18/DEC/2015)
     Route: 042
     Dates: start: 20151218
  10. VINCRISTINE [Suspect]
     Active Substance: VINCRISTINE
     Indication: B-CELL LYMPHOMA
     Dosage: ONCE/CYCLE FOR 1 DAY (LAST DOSE PRIOR TO SAE 18/DEC/2015)
     Route: 042
     Dates: start: 20151218
  11. LEUCOVORIN. [Suspect]
     Active Substance: LEUCOVORIN
     Indication: B-CELL LYMPHOMA
     Dosage: 1 CYCLE FOR 2 DAYS (LAST DOSE PRIOR TO SAE 28/NOV/2015)
     Route: 042
     Dates: start: 20151127
  12. COLECALCIFEROL [Concomitant]
     Active Substance: CHOLECALCIFEROL
     Route: 065
     Dates: start: 20151118

REACTIONS (2)
  - Subclavian vein thrombosis [Unknown]
  - Thrombosis [Unknown]

NARRATIVE: CASE EVENT DATE: 20151229
